FAERS Safety Report 4874316-9 (Version None)
Quarter: 2005Q4

REPORT INFORMATION
  Report Type: 
  Country: None (occurrence: None)
  Receive Date: 20051201
  Receipt Date: 20050811
  Transmission Date: 20060501
  Serious: No
  Sender: FDA-Public Use
  Company Number: 2005PV001029

PATIENT
  Age: 54 Year
  Sex: Female

DRUGS (7)
  1. BYETTA [Suspect]
     Indication: DIABETES MELLITUS NON-INSULIN-DEPENDENT
     Dosage: SEE IMAGE
     Route: 058
     Dates: start: 20050101, end: 20050101
  2. BYETTA [Suspect]
     Indication: DIABETES MELLITUS NON-INSULIN-DEPENDENT
     Dosage: SEE IMAGE
     Route: 058
     Dates: start: 20050809
  3. GLUCOPHAGE [Concomitant]
  4. AMARYL [Concomitant]
  5. HYDROCHLOROTHIAZIDE [Concomitant]
  6. MONOPRIL [Concomitant]
  7. CROHN'S DISEASE MEDICATIONS [Concomitant]

REACTIONS (4)
  - DEVICE MALFUNCTION [None]
  - DRUG EFFECT DECREASED [None]
  - INFLUENZA LIKE ILLNESS [None]
  - UNDERDOSE [None]
